FAERS Safety Report 7186060-6 (Version None)
Quarter: 2010Q4

REPORT INFORMATION
  Report Type: 
  Country: None (occurrence: None)
  Receive Date: 20101222
  Receipt Date: 20100614
  Transmission Date: 20110411
  Serious: No
  Sender: FDA-Public Use
  Company Number: US-AMGEN-KDL418097

PATIENT

DRUGS (5)
  1. ENBREL [Suspect]
     Indication: PRODUCT USED FOR UNKNOWN INDICATION
     Dosage: 50 MG, QWK
     Route: 058
  2. ALPRAZOLAM [Concomitant]
     Dosage: .25 MG, UNK
  3. CARISOPRODOL [Concomitant]
     Dosage: 250 MG, UNK
  4. ACETAMINOPHEN AND HYDROCODONE BITARTRATE [Concomitant]
     Dosage: 500 MG, UNK
  5. OXYCODONE HYDROCHLORIDE [Concomitant]
     Dosage: 10 MG, UNK

REACTIONS (2)
  - CONTUSION [None]
  - ERYTHEMA [None]
